FAERS Safety Report 7658604-9 (Version None)
Quarter: 2011Q3

REPORT INFORMATION
  Report Type: 
  Country: None (occurrence: None)
  Receive Date: 20110805
  Receipt Date: 20110802
  Transmission Date: 20111222
  Serious: Yes (Hospitalization, Other)
  Sender: FDA-Public Use
  Company Number: SG-BRISTOL-MYERS SQUIBB COMPANY-15941941

PATIENT
  Age: 69 Year
  Sex: Female
  Weight: 40 kg

DRUGS (6)
  1. DEXAMETHASONE [Concomitant]
     Dates: start: 20110714
  2. CISPLATIN [Suspect]
     Indication: NON-SMALL CELL LUNG CANCER
     Dates: start: 20110714
  3. KETOTOP [Concomitant]
     Dates: start: 20110711
  4. SPAN-K [Concomitant]
     Dates: start: 20110711
  5. GEMCITABINE HYDROCHLORIDE [Suspect]
     Indication: NON-SMALL CELL LUNG CANCER
     Dosage: VIAL
     Dates: start: 20110714
  6. ONDANSETRON HCL [Concomitant]
     Dates: start: 20110714

REACTIONS (6)
  - ANAEMIA [None]
  - UPPER GASTROINTESTINAL HAEMORRHAGE [None]
  - GASTRIC ULCER [None]
  - THROMBOCYTOPENIA [None]
  - DEHYDRATION [None]
  - NEUTROPENIA [None]
